FAERS Safety Report 20543526 (Version 1)
Quarter: 2022Q1

REPORT INFORMATION
  Report Type: Spontaneous
  Country: GB (occurrence: GB)
  Receive Date: 20220302
  Receipt Date: 20220302
  Transmission Date: 20220424
  Serious: Yes (Other)
  Sender: FDA-Public Use
  Company Number: None

PATIENT
  Age: 11 Week

DRUGS (1)
  1. DEXTROSE\SODIUM CHLORIDE [Suspect]
     Active Substance: DEXTROSE\SODIUM CHLORIDE
     Indication: Product used for unknown indication
     Dosage: 18MLS/HR?5%/0.9%, 500ML CONTAINER; EXPIRY DATE 30/11/2022
     Route: 042
     Dates: start: 20220110, end: 20220111

REACTIONS (7)
  - Catheter site related reaction [Unknown]
  - Irritability [Unknown]
  - Peripheral swelling [Unknown]
  - Blister [Unknown]
  - Skin exfoliation [Unknown]
  - Chemical burn of skin [Unknown]
  - Crying [Unknown]
